FAERS Safety Report 9283665 (Version 1)
Quarter: 2013Q2

REPORT INFORMATION
  Report Type: Spontaneous
  Country: US (occurrence: None)
  Receive Date: 20130508
  Receipt Date: 20130508
  Transmission Date: 20140414
  Serious: Yes (Death, Hospitalization)
  Sender: FDA-Public Use
  Company Number: CABO-13002558

PATIENT
  Age: 14 Year
  Sex: Male
  Weight: 37.7 kg

DRUGS (4)
  1. COMETRIQ [Suspect]
     Indication: THYROID CANCER
     Dosage: 140 MG, QD, ORAL
     Route: 048
     Dates: start: 20130320, end: 20130422
  2. SYNTHROID (LEVOTHYROXINE SODIUM) [Concomitant]
  3. ROCALTROL (CALCITRIOL) [Concomitant]
  4. VITAMIN D (ERGOCALCIFEROL) [Concomitant]

REACTIONS (15)
  - Haemorrhage [None]
  - Fistula [None]
  - Chest pain [None]
  - Bronchitis [None]
  - Electrolyte imbalance [None]
  - Pyrexia [None]
  - Stomatitis [None]
  - Tachycardia [None]
  - Oropharyngeal pain [None]
  - Decreased appetite [None]
  - Decreased activity [None]
  - Generalised erythema [None]
  - Radiation skin injury [None]
  - Catheter site discharge [None]
  - Catheter site erythema [None]
